FAERS Safety Report 5676665-3 (Version None)
Quarter: 2008Q2

REPORT INFORMATION
  Report Type: 
  Country: None (occurrence: None)
  Receive Date: 20080310
  Receipt Date: 20071224
  Transmission Date: 20081010
  Serious: Yes (Other)
  Sender: FDA-Public Use
  Company Number: 08-002

PATIENT
  Sex: Female

DRUGS (3)
  1. ALEVE [Suspect]
     Dosage: 220-440MG, DAILY, ORAL
     Route: 048
     Dates: end: 20071219
  2. ATENOLOL [Concomitant]
  3. HYDROCHLOROTHIAZIDE [Concomitant]

REACTIONS (1)
  - BLOOD PRESSURE INCREASED [None]
